FAERS Safety Report 14572579 (Version 1)
Quarter: 2018Q1

REPORT INFORMATION
  Report Type: Report from Study
  Country: JP (occurrence: JP)
  Receive Date: 20180226
  Receipt Date: 20180226
  Transmission Date: 20180509
  Serious: Yes (Hospitalization)
  Sender: FDA-Public Use
  Company Number: JP-SA-2018SA048672

PATIENT
  Age: 67 Year
  Sex: Female

DRUGS (4)
  1. PHOSBLOCK [Suspect]
     Active Substance: FERRIC HYDROXIDE
     Route: 048
     Dates: start: 20150202, end: 20151109
  2. REGPARA [Suspect]
     Active Substance: CINACALCET HYDROCHLORIDE
     Route: 048
     Dates: start: 20140224, end: 20170212
  3. REGPARA [Suspect]
     Active Substance: CINACALCET HYDROCHLORIDE
     Route: 048
     Dates: start: 20170213, end: 20170517
  4. PHOSBLOCK [Suspect]
     Active Substance: FERRIC HYDROXIDE
     Route: 048
     Dates: start: 20160516

REACTIONS (1)
  - Fracture [Recovering/Resolving]

NARRATIVE: CASE EVENT DATE: 20171006
